FAERS Safety Report 9237284 (Version 1)
Quarter: 2013Q2

REPORT INFORMATION
  Report Type: Spontaneous
  Country: CH (occurrence: CH)
  Receive Date: 20130417
  Receipt Date: 20130417
  Transmission Date: 20140414
  Serious: Yes (Other)
  Sender: FDA-Public Use
  Company Number: CH-GILEAD-2013-0073224

PATIENT
  Age: 0 Year
  Sex: Female

DRUGS (9)
  1. TRUVADA [Suspect]
     Indication: HIV INFECTION
     Dosage: UNK
     Route: 064
     Dates: start: 20120517
  2. HALOPERIDOL [Suspect]
     Indication: PSYCHOTIC DISORDER
     Dosage: 5 MG, UNK
     Route: 064
     Dates: start: 20120516
  3. ROCEPHINE [Suspect]
     Indication: LATENT SYPHILIS
     Dosage: 2 G, UNK
     Route: 064
     Dates: start: 20120516, end: 20120516
  4. EXTENCILLINE [Suspect]
     Indication: LATENT SYPHILIS
     Route: 064
     Dates: start: 20120517
  5. ISENTRESS [Suspect]
     Indication: HIV INFECTION
     Route: 064
     Dates: start: 20120517
  6. FERINJECT [Concomitant]
     Dosage: 1 G, UNK
     Route: 064
     Dates: start: 20120517, end: 20120517
  7. ADALAT [Concomitant]
     Route: 064
     Dates: start: 20120516
  8. UTROGESTAN [Concomitant]
     Route: 064
     Dates: start: 20120516
  9. MAGNESIOCARD [Concomitant]
     Route: 064
     Dates: start: 20120516

REACTIONS (6)
  - Premature baby [Recovered/Resolved]
  - Caesarean section [Recovered/Resolved]
  - Jaundice neonatal [Recovered/Resolved]
  - Anaemia neonatal [Recovered/Resolved]
  - Maternal drugs affecting foetus [None]
  - Neonatal respiratory distress syndrome [None]
